FAERS Safety Report 4283202-7 (Version None)
Quarter: 2004Q1

REPORT INFORMATION
  Report Type: 
  Country: None (occurrence: None)
  Receive Date: 20040129
  Receipt Date: 20040121
  Transmission Date: 20041129
  Serious: Yes (Life-Threatening)
  Sender: FDA-Public Use
  Company Number: RGD54756/405/2-CA471FB

PATIENT
  Age: 35 Year
  Sex: Female

DRUGS (1)
  1. LEVONELLE (LEVONORGESTREL) 0.75 MG TABLETS [Suspect]
     Dosage: 0.75 MG/DAY, ORAL
     Route: 048
     Dates: start: 20031013

REACTIONS (2)
  - COMPLICATIONS OF MATERNAL EXPOSURE TO THERAPEUTIC DRUGS [None]
  - ECTOPIC PREGNANCY [None]
